FAERS Safety Report 24630474 (Version 2)
Quarter: 2024Q4

REPORT INFORMATION
  Report Type: Spontaneous
  Country: US (occurrence: US)
  Receive Date: 20241118
  Receipt Date: 20241119
  Transmission Date: 20250115
  Serious: Yes (Hospitalization)
  Sender: MYLAN
  Company Number: US-MYLANLABS-2024M1101917

PATIENT
  Sex: Female

DRUGS (9)
  1. MAGNESIUM SULFATE [Suspect]
     Active Substance: MAGNESIUM SULFATE
     Indication: Bradycardia foetal
     Dosage: UNK
     Route: 064
  2. MAGNESIUM SULFATE [Suspect]
     Active Substance: MAGNESIUM SULFATE
     Indication: Ventricular tachycardia
  3. MAGNESIUM SULFATE [Suspect]
     Active Substance: MAGNESIUM SULFATE
     Indication: Foetal disorder
  4. PROPRANOLOL [Suspect]
     Active Substance: PROPRANOLOL HYDROCHLORIDE
     Indication: Bradycardia foetal
     Dosage: UNK
     Route: 064
  5. PROPRANOLOL [Suspect]
     Active Substance: PROPRANOLOL HYDROCHLORIDE
     Indication: Ventricular tachycardia
  6. PROPRANOLOL [Suspect]
     Active Substance: PROPRANOLOL HYDROCHLORIDE
     Indication: Foetal disorder
  7. MEXILETINE [Suspect]
     Active Substance: MEXILETINE
     Indication: Bradycardia foetal
     Dosage: UNK
     Route: 064
  8. MEXILETINE [Suspect]
     Active Substance: MEXILETINE
     Indication: Ventricular tachycardia
  9. MEXILETINE [Suspect]
     Active Substance: MEXILETINE
     Indication: Foetal disorder

REACTIONS (2)
  - Foetal exposure during pregnancy [Unknown]
  - Drug ineffective [Unknown]
